FAERS Safety Report 23184953 (Version 1)
Quarter: 2023Q4

REPORT INFORMATION
  Report Type: Spontaneous
  Country: CN (occurrence: CN)
  Receive Date: 20231115
  Receipt Date: 20231115
  Transmission Date: 20240110
  Serious: Yes (Other)
  Sender: FDA-Public Use
  Company Number: CN-ALCON LABORATORIES-ALC2023CN005065

PATIENT
  Age: 47 Year
  Sex: Male
  Weight: 70 kg

DRUGS (4)
  1. ATROPINE SULFATE [Suspect]
     Active Substance: ATROPINE SULFATE
     Indication: Vogt-Koyanagi-Harada disease
     Dosage: 1 DROP, QD
     Route: 047
     Dates: start: 20230807, end: 20231011
  2. PRED FORTE [Suspect]
     Active Substance: PREDNISOLONE ACETATE
     Indication: Vogt-Koyanagi-Harada disease
     Dosage: 1 DROP TID
     Route: 047
     Dates: start: 20230807, end: 20231011
  3. TOBRADEX [Suspect]
     Active Substance: DEXAMETHASONE\TOBRAMYCIN
     Indication: Vogt-Koyanagi-Harada disease
     Dosage: 1 DRP, QD
     Route: 047
     Dates: start: 20230807, end: 20231011
  4. TROPICAMIDE [Suspect]
     Active Substance: TROPICAMIDE
     Indication: Vogt-Koyanagi-Harada disease
     Dosage: 1 DRP, TID
     Route: 047
     Dates: start: 20230823, end: 20231011

REACTIONS (1)
  - Ocular hypertension [Recovering/Resolving]

NARRATIVE: CASE EVENT DATE: 20230823
